FAERS Safety Report 7959406-6 (Version None)
Quarter: 2011Q4

REPORT INFORMATION
  Report Type: 
  Country: None (occurrence: None)
  Receive Date: 20111206
  Receipt Date: 20111117
  Transmission Date: 20120403
  Serious: Yes (Hospitalization)
  Sender: FDA-Public Use
  Company Number: US-ASTRAZENECA-2011SE70558

PATIENT
  Sex: Female

DRUGS (9)
  1. NEXIUM [Suspect]
     Route: 048
  2. MIRALAX [Concomitant]
     Dosage: ONCE A DAY AND ONCE A NIGHT
  3. ROLAIDS [Concomitant]
     Dosage: AS NEEDED
  4. WOMENS PROACTIVE VITAMIN [Concomitant]
  5. CYCLOBENZAPR [Concomitant]
  6. AMITIZA [Concomitant]
  7. BENEFIBER [Concomitant]
     Dosage: ONCE A DAY
  8. HYDROXYZINE [Concomitant]
  9. AMITRIPTYLINE HCL [Concomitant]

REACTIONS (15)
  - DEHYDRATION [None]
  - DIVERTICULITIS [None]
  - IRRITABLE BOWEL SYNDROME [None]
  - ANXIETY [None]
  - DEPRESSION [None]
  - HIATUS HERNIA [None]
  - VOMITING [None]
  - DRUG DOSE OMISSION [None]
  - FUNGAL INFECTION [None]
  - GASTROOESOPHAGEAL REFLUX DISEASE [None]
  - HYPERHIDROSIS [None]
  - PAIN [None]
  - NAUSEA [None]
  - MIGRAINE [None]
  - NERVOUSNESS [None]
